FAERS Safety Report 6690484-0 (Version None)
Quarter: 2010Q2

REPORT INFORMATION
  Report Type: 
  Country: None (occurrence: None)
  Receive Date: 20100419
  Receipt Date: 20100419
  Transmission Date: 20101027
  Serious: Yes (Other)
  Sender: FDA-Public Use
  Company Number: None

PATIENT
  Sex: Female
  Weight: 49.8957 kg

DRUGS (1)
  1. LISINOPRIL [Suspect]
     Indication: HYPERTENSION
     Dosage: 10 MG 1 X DAY BY MOUTH
     Route: 048
     Dates: start: 20100227, end: 20100325

REACTIONS (5)
  - DRY SKIN [None]
  - PRURITUS [None]
  - RASH ERYTHEMATOUS [None]
  - SKIN ATROPHY [None]
  - SKIN EXFOLIATION [None]
